FAERS Safety Report 19909524 (Version 2)
Quarter: 2022Q4

REPORT INFORMATION
  Report Type: Spontaneous
  Country: US (occurrence: US)
  Receive Date: 20211001
  Receipt Date: 20221003
  Transmission Date: 20230113
  Serious: Yes (Other)
  Sender: FDA-Public Use
  Company Number: US-AMARIN PHARMACEUTICALS IRELAND LIMITED-2021AMR000437

PATIENT
  Age: 60 Year
  Sex: Female
  Weight: 73.03 kg

DRUGS (6)
  1. VASCEPA [Suspect]
     Active Substance: ICOSAPENT ETHYL
     Indication: Blood triglycerides increased
     Dates: start: 202006, end: 20210419
  2. VASCEPA [Suspect]
     Active Substance: ICOSAPENT ETHYL
     Dates: start: 20210519, end: 20210524
  3. VASCEPA [Suspect]
     Active Substance: ICOSAPENT ETHYL
     Dates: start: 20210525, end: 20210620
  4. VASCEPA [Suspect]
     Active Substance: ICOSAPENT ETHYL
     Dates: start: 20210621, end: 20210621
  5. VASCEPA [Suspect]
     Active Substance: ICOSAPENT ETHYL
     Dates: start: 20210623
  6. ATORVASTATIN [Concomitant]
     Active Substance: ATORVASTATIN
     Indication: Blood cholesterol abnormal

REACTIONS (10)
  - Haematemesis [Recovered/Resolved]
  - Liver function test increased [Unknown]
  - White blood cell count increased [Unknown]
  - Malaise [Recovered/Resolved]
  - Dyspnoea [Unknown]
  - Abdominal pain [Recovered/Resolved]
  - Back pain [Recovered/Resolved]
  - Diarrhoea [Recovered/Resolved]
  - Intentional underdose [Recovered/Resolved]
  - Product odour abnormal [Unknown]

NARRATIVE: CASE EVENT DATE: 20210401
